FAERS Safety Report 25135109 (Version 1)
Quarter: 2025Q1

REPORT INFORMATION
  Report Type: Spontaneous
  Country: TH (occurrence: TH)
  Receive Date: 20250328
  Receipt Date: 20250328
  Transmission Date: 20250408
  Serious: Yes (Hospitalization, Other)
  Sender: BOEHRINGER INGELHEIM
  Company Number: TH-BoehringerIngelheim-2025-BI-018401

PATIENT
  Age: 64 Year
  Sex: Male

DRUGS (1)
  1. PRADAXA [Suspect]
     Active Substance: DABIGATRAN ETEXILATE MESYLATE
     Indication: Atrial fibrillation
     Dosage: DABIGATRAN 110MG BID

REACTIONS (3)
  - Haematuria [Recovered/Resolved]
  - Fournier^s gangrene [Unknown]
  - Septic shock [Recovered/Resolved]
